FAERS Safety Report 12060572 (Version 2)
Quarter: 2016Q1

REPORT INFORMATION
  Report Type: Spontaneous
  Country: US (occurrence: US)
  Receive Date: 20160210
  Receipt Date: 20160317
  Transmission Date: 20160526
  Serious: Yes (Hospitalization, Other)
  Sender: FDA-Public Use
  Company Number: US-GLAXOSMITHKLINE-US2016018877

PATIENT
  Age: 71 Year
  Sex: Male

DRUGS (10)
  1. LEVOTHYROXIN [Concomitant]
     Active Substance: LEVOTHYROXINE
  2. ECOTRIN [Concomitant]
     Active Substance: ASPIRIN
  3. MONTELUKAST [Concomitant]
     Active Substance: MONTELUKAST SODIUM
  4. SPIRIVA [Concomitant]
     Active Substance: TIOTROPIUM BROMIDE MONOHYDRATE
  5. HYDROCODONE [Concomitant]
     Active Substance: HYDROCODONE
  6. LISINOPRIL. [Concomitant]
     Active Substance: LISINOPRIL
  7. PRAVASTATIN [Concomitant]
     Active Substance: PRAVASTATIN\PRAVASTATIN SODIUM
  8. XANAX [Concomitant]
     Active Substance: ALPRAZOLAM
  9. DILTIAZEM HCL ER [Concomitant]
  10. ADVAIR DISKUS [Suspect]
     Active Substance: FLUTICASONE PROPIONATE\SALMETEROL XINAFOATE
     Indication: CHRONIC OBSTRUCTIVE PULMONARY DISEASE
     Dosage: 1 PUFF(S), BID
     Route: 055

REACTIONS (2)
  - Pain [Recovering/Resolving]
  - Gallbladder operation [Recovering/Resolving]

NARRATIVE: CASE EVENT DATE: 20160205
